FAERS Safety Report 19079587 (Version 2)
Quarter: 2021Q2

REPORT INFORMATION
  Report Type: Report from Study
  Country: US (occurrence: US)
  Receive Date: 20210331
  Receipt Date: 20210415
  Transmission Date: 20210717
  Serious: Yes (Death)
  Sender: FDA-Public Use
  Company Number: US-CELGENEUS-USA-20210307457

PATIENT
  Age: 52 Year
  Sex: Male
  Weight: 126.21 kg

DRUGS (24)
  1. DEXAMETHASONE. [Suspect]
     Active Substance: DEXAMETHASONE
     Dosage: 20 MILLIGRAM
     Route: 048
     Dates: end: 20210319
  2. AMIODARONE [Concomitant]
     Active Substance: AMIODARONE
     Indication: ATRIAL TACHYCARDIA
     Route: 041
     Dates: start: 202103, end: 202103
  3. ACYCLOVIR. [Concomitant]
     Active Substance: ACYCLOVIR
     Indication: ANTIVIRAL PROPHYLAXIS
     Dosage: 800 MILLIGRAM
     Route: 048
     Dates: start: 2019
  4. METOPROLOL XL [Concomitant]
     Active Substance: METOPROLOL SUCCINATE
     Dosage: 100 MILLIGRAM
     Route: 048
     Dates: start: 20210318
  5. ALBUTEROL HFA [Concomitant]
     Active Substance: ALBUTEROL SULFATE
     Indication: PROPHYLAXIS
     Route: 055
     Dates: start: 2019
  6. POMALIDOMIDE [Suspect]
     Active Substance: POMALIDOMIDE
     Indication: PLASMA CELL MYELOMA
     Dosage: 4 MILLIGRAM
     Route: 048
     Dates: start: 20200925
  7. DEXAMETHASONE. [Suspect]
     Active Substance: DEXAMETHASONE
     Dosage: 20 MILLIGRAM
     Route: 041
     Dates: start: 20200923
  8. ONDANSETRON HCL [Concomitant]
     Active Substance: ONDANSETRON HYDROCHLORIDE
     Indication: PROPHYLAXIS OF NAUSEA AND VOMITING
     Route: 048
     Dates: start: 20180122
  9. BENZONATATE. [Concomitant]
     Active Substance: BENZONATATE
     Indication: COVID-19 PNEUMONIA
     Dosage: 300 MILLIGRAM
     Route: 048
     Dates: start: 20210201, end: 20210317
  10. GLYBURIDE. [Concomitant]
     Active Substance: GLYBURIDE
     Indication: TYPE 2 DIABETES MELLITUS
     Dosage: 2.5 MILLIGRAM
     Route: 048
     Dates: start: 20210317
  11. DEXAMETHASONE. [Suspect]
     Active Substance: DEXAMETHASONE
     Dosage: 20 MILLIGRAM
     Route: 041
     Dates: end: 20210319
  12. DARATUMUMAB [Suspect]
     Active Substance: DARATUMUMAB
     Indication: PLASMA CELL MYELOMA
     Dosage: 2000 MILLIGRAM
     Route: 041
     Dates: start: 20200923
  13. POMALIDOMIDE [Suspect]
     Active Substance: POMALIDOMIDE
     Dosage: 4 MILLIGRAM
     Route: 048
     Dates: end: 20210313
  14. APIXABAN [Concomitant]
     Active Substance: APIXABAN
     Indication: ATRIAL FIBRILLATION
     Dosage: 10 MILLIGRAM
     Route: 048
     Dates: start: 20200825
  15. VITAMIN D3 [Concomitant]
     Active Substance: CHOLECALCIFEROL
     Indication: ROUTINE HEALTH MAINTENANCE
     Dosage: 50 MICROGRAM
     Route: 048
     Dates: start: 20190801
  16. DARATUMUMAB [Suspect]
     Active Substance: DARATUMUMAB
     Dosage: 2000 MILLIGRAM
     Route: 041
     Dates: end: 20210319
  17. METOPROLOL XL [Concomitant]
     Active Substance: METOPROLOL SUCCINATE
     Indication: ATRIAL FIBRILLATION
     Dosage: 50 MILLIGRAM
     Route: 048
     Dates: start: 20200808, end: 20210318
  18. PANTOPRAZOLE [Concomitant]
     Active Substance: PANTOPRAZOLE
     Indication: PROPHYLAXIS AGAINST GASTROINTESTINAL ULCER
     Dosage: 40 MILLIGRAM
     Route: 048
     Dates: start: 20191229
  19. MONTELUKAST SODIUM. [Concomitant]
     Active Substance: MONTELUKAST SODIUM
     Indication: PNEUMONIA LEGIONELLA
     Dosage: 10 MILLIGRAM
     Route: 048
     Dates: start: 20201115
  20. INSULIN [Concomitant]
     Active Substance: INSULIN NOS
     Indication: TYPE 2 DIABETES MELLITUS
     Dosage: SLIDING SCALE, UNITS
     Route: 058
     Dates: start: 20210119
  21. DEXAMETHASONE. [Suspect]
     Active Substance: DEXAMETHASONE
     Indication: PLASMA CELL MYELOMA
     Dosage: 20 MILLIGRAM
     Route: 048
     Dates: start: 20200923
  22. GUAIFENESIN. [Concomitant]
     Active Substance: GUAIFENESIN
     Indication: COVID-19 PNEUMONIA
     Dosage: 1200 MILLIGRAM
     Route: 048
     Dates: start: 20210201, end: 20210303
  23. PRBC [Concomitant]
     Active Substance: HUMAN RED BLOOD CELL
     Indication: ANAEMIA
     Dosage: 2 UNITS
     Route: 041
     Dates: start: 20210320, end: 20210320
  24. MONTELUKAST SODIUM. [Concomitant]
     Active Substance: MONTELUKAST SODIUM
     Indication: PYREXIA

REACTIONS (2)
  - Sepsis [Fatal]
  - Multiple organ dysfunction syndrome [Fatal]

NARRATIVE: CASE EVENT DATE: 20210320
